FAERS Safety Report 7732146-4 (Version None)
Quarter: 2011Q3

REPORT INFORMATION
  Report Type: 
  Country: None (occurrence: None)
  Receive Date: 20110906
  Receipt Date: 20110812
  Transmission Date: 20111222
  Serious: No
  Sender: FDA-Public Use
  Company Number: US-AMGEN-USASP2011041057

PATIENT
  Age: 76 Year
  Sex: Female

DRUGS (7)
  1. CRESTOR [Concomitant]
     Dosage: UNK
  2. REFRESH TEARS [Concomitant]
     Dosage: UNK
  3. CALCIUM WITH VITAMIN D             /00944201/ [Concomitant]
  4. PROLIA [Suspect]
     Indication: OSTEOPOROSIS POSTMENOPAUSAL
     Dosage: 60 MG, Q6MO
     Dates: start: 20110525
  5. BIO TEARS [Concomitant]
     Dosage: UNK
  6. NEXIUM [Concomitant]
     Indication: DYSPEPSIA
  7. MULTIVITAMIN                       /00097801/ [Concomitant]
     Dosage: UNK

REACTIONS (8)
  - CYSTITIS [None]
  - CERUMEN IMPACTION [None]
  - DIVERTICULUM [None]
  - SPINAL DEFORMITY [None]
  - MALAISE [None]
  - VOMITING [None]
  - EAR INFECTION [None]
  - NAUSEA [None]
